FAERS Safety Report 8078013-0 (Version None)
Quarter: 2012Q1

REPORT INFORMATION
  Report Type: 
  Country: None (occurrence: None)
  Receive Date: 20120127
  Receipt Date: 20110106
  Transmission Date: 20120608
  Serious: No
  Sender: FDA-Public Use
  Company Number: US-ABBOTT-11P-163-0695799-00

PATIENT
  Sex: Male
  Weight: 110 kg

DRUGS (2)
  1. HUMIRA [Suspect]
     Indication: CROHN'S DISEASE
     Route: 058
     Dates: start: 20100303
  2. HUMIRA [Suspect]
     Indication: ANAL FISTULA

REACTIONS (4)
  - CROHN'S DISEASE [None]
  - INAPPROPRIATE SCHEDULE OF DRUG ADMINISTRATION [None]
  - ANAL FISTULA [None]
  - DRUG INEFFECTIVE [None]
